FAERS Safety Report 8472512-5 (Version None)
Quarter: 2012Q2

REPORT INFORMATION
  Report Type: 
  Country: None (occurrence: None)
  Receive Date: 20120622
  Receipt Date: 20120622
  Transmission Date: 20120825
  Serious: Yes (Other)
  Sender: FDA-Public Use
  Company Number: None

PATIENT
  Age: 60 Year
  Sex: Female

DRUGS (2)
  1. RIBAVIRIN [Suspect]
     Indication: HEPATITIS C
     Dosage: 1000MG DAILY PO
     Route: 048
     Dates: start: 20120329, end: 20120602
  2. PEGASYS [Suspect]
     Indication: HEPATITIS C
     Dosage: 180MCG QW SUBQ
     Route: 058
     Dates: start: 20120329, end: 20120620

REACTIONS (1)
  - HAEMOGLOBIN DECREASED [None]
